FAERS Safety Report 9069869 (Version 1)
Quarter: 2013Q1

REPORT INFORMATION
  Report Type: Spontaneous
  Country: US (occurrence: US)
  Receive Date: 20130215
  Receipt Date: 20130215
  Transmission Date: 20140127
  Serious: Yes (Other)
  Sender: FDA-Public Use
  Company Number: CHPA2013US002768

PATIENT
  Age: 67 Year
  Sex: Female

DRUGS (5)
  1. KROGER PLP [Suspect]
     Indication: SMOKING CESSATION THERAPY
     Dosage: 14 MG, QD
     Route: 062
     Dates: start: 2000
  2. CHANTIX [Suspect]
     Dosage: UNK, UNK
  3. METOPROLOL [Concomitant]
  4. QUINAPRIL [Concomitant]
     Indication: HYPERTENSION
  5. TRIAMTERENE/HCTZ [Concomitant]
     Indication: HYPERTENSION

REACTIONS (4)
  - Breast cancer [Recovered/Resolved]
  - Skin cancer [Recovered/Resolved]
  - Abnormal dreams [Unknown]
  - Drug ineffective [Unknown]
